FAERS Safety Report 4910923-2 (Version None)
Quarter: 2006Q1

REPORT INFORMATION
  Report Type: 
  Country: None (occurrence: None)
  Receive Date: 20060214
  Receipt Date: 20060105
  Transmission Date: 20060701
  Serious: Yes (Other)
  Sender: FDA-Public Use
  Company Number: US-ROCHE-431089

PATIENT
  Age: 55 Year
  Sex: Female

DRUGS (2)
  1. PEG-INTERFERON ALFA 2A (RO 25-8310) [Suspect]
     Route: 065
  2. COPEGUS [Suspect]
     Route: 048
     Dates: end: 20051215

REACTIONS (2)
  - HIATUS HERNIA [None]
  - OESOPHAGITIS [None]
